FAERS Safety Report 17764074 (Version 1)
Quarter: 2020Q2

REPORT INFORMATION
  Report Type: Report from Study
  Country: None (occurrence: US)
  Receive Date: 20200511
  Receipt Date: 20200511
  Transmission Date: 20200714
  Serious: Yes (Other)
  Sender: FDA-Public Use
  Company Number: US-ABBVIE-20K-163-3396813-00

PATIENT
  Age: 31 Year
  Sex: Male

DRUGS (1)
  1. HUMIRA [Suspect]
     Active Substance: ADALIMUMAB
     Indication: CROHN^S DISEASE
     Dosage: CITRATE FREE
     Route: 058

REACTIONS (5)
  - Myalgia [Not Recovered/Not Resolved]
  - Injection site nerve damage [Not Recovered/Not Resolved]
  - Neuralgia [Not Recovered/Not Resolved]
  - Hernia [Unknown]
  - Irritability [Not Recovered/Not Resolved]

NARRATIVE: CASE EVENT DATE: 2020
